FAERS Safety Report 16868928 (Version 1)
Quarter: 2019Q3

REPORT INFORMATION
  Report Type: Report from Study
  Country: US (occurrence: US)
  Receive Date: 20190930
  Receipt Date: 20190930
  Transmission Date: 20191005
  Serious: Yes (Hospitalization)
  Sender: FDA-Public Use
  Company Number: US-ACTELION-A-US2019-196062

PATIENT
  Sex: Female

DRUGS (14)
  1. PANTOPRAZOLE [Concomitant]
     Active Substance: PANTOPRAZOLE
  2. OPSUMIT [Suspect]
     Active Substance: MACITENTAN
     Indication: PULMONARY ARTERIAL HYPERTENSION
     Dosage: 10 MG, QD
     Route: 048
     Dates: start: 20180217
  3. SILDENAFIL. [Concomitant]
     Active Substance: SILDENAFIL
  4. SOTALOL. [Concomitant]
     Active Substance: SOTALOL
  5. BUMETANIDE. [Concomitant]
     Active Substance: BUMETANIDE
  6. CHLOROTHIAZIDE. [Concomitant]
     Active Substance: CHLOROTHIAZIDE
  7. NORETHINDRONE. [Concomitant]
     Active Substance: NORETHINDRONE
  8. METOLAZONE. [Concomitant]
     Active Substance: METOLAZONE
  9. SPIRONOLACTONE. [Concomitant]
     Active Substance: SPIRONOLACTONE
  10. MAG64 [Concomitant]
     Active Substance: CALCIUM CHLORIDE\MAGNESIUM CHLORIDE
  11. WARFARIN [Concomitant]
     Active Substance: WARFARIN
  12. FERROUS SULFATE. [Concomitant]
     Active Substance: FERROUS SULFATE
  13. POTASSIUM CHLORIDE. [Concomitant]
     Active Substance: POTASSIUM CHLORIDE
  14. DIGOXIN. [Concomitant]
     Active Substance: DIGOXIN

REACTIONS (1)
  - Cardiac disorder [Not Recovered/Not Resolved]
